FAERS Safety Report 24345356 (Version 1)
Quarter: 2024Q3

REPORT INFORMATION
  Report Type: Spontaneous
  Country: SK (occurrence: SK)
  Receive Date: 20240920
  Receipt Date: 20240920
  Transmission Date: 20241017
  Serious: Yes (Hospitalization, Other)
  Sender: TEVA
  Company Number: SK-KRKA-SK2019K09346LIT

PATIENT
  Age: 53 Year
  Sex: Female

DRUGS (26)
  1. CANDESARTAN [Suspect]
     Active Substance: CANDESARTAN
     Indication: Dilated cardiomyopathy
     Route: 065
     Dates: start: 201603
  2. RIVAROXABAN [Concomitant]
     Active Substance: RIVAROXABAN
     Indication: Product used for unknown indication
  3. METAMIZOLE [Concomitant]
     Active Substance: METAMIZOLE
     Indication: Product used for unknown indication
  4. NOREPINEPHRINE [Concomitant]
     Active Substance: NOREPINEPHRINE\NOREPINEPHRINE BITARTRATE
     Indication: Product used for unknown indication
  5. DOXORUBICIN [Suspect]
     Active Substance: DOXORUBICIN
     Indication: Breast cancer
     Route: 065
  6. CARVEDILOL [Concomitant]
     Active Substance: CARVEDILOL
     Indication: Product used for unknown indication
  7. MAGNESIUM [Concomitant]
     Active Substance: MAGNESIUM
     Indication: Product used for unknown indication
  8. IVABRADINE [Concomitant]
     Active Substance: IVABRADINE
     Indication: Dilated cardiomyopathy
  9. COENZYME Q10 [Concomitant]
     Active Substance: DIETARY SUPPLEMENT\UBIDECARENONE
     Indication: Product used for unknown indication
  10. SPIRONOLACTONE [Concomitant]
     Active Substance: SPIRONOLACTONE
     Indication: Product used for unknown indication
  11. ALLOPURINOL [Concomitant]
     Active Substance: ALLOPURINOL
     Indication: Product used for unknown indication
  12. LEVOSIMENDAN [Concomitant]
     Active Substance: LEVOSIMENDAN
     Indication: Product used for unknown indication
  13. LEVOCARNITINE [Concomitant]
     Active Substance: LEVOCARNITINE
     Indication: Product used for unknown indication
     Route: 065
  14. TRIMETAZIDINE [Concomitant]
     Active Substance: TRIMETAZIDINE
     Indication: Product used for unknown indication
  15. CYCLOPHOSPHAMIDE [Suspect]
     Active Substance: CYCLOPHOSPHAMIDE
     Indication: Chemotherapy
     Route: 065
  16. Naloxone hydrochloride Oxycodone [Concomitant]
     Indication: Product used for unknown indication
  17. SACUBITRIL\VALSARTAN [Concomitant]
     Active Substance: SACUBITRIL\VALSARTAN
     Indication: Product used for unknown indication
  18. LETROZOLE [Suspect]
     Active Substance: LETROZOLE
     Indication: Breast cancer
     Route: 065
  19. ADRIAMYCIN [Suspect]
     Active Substance: DOXORUBICIN HYDROCHLORIDE
     Indication: Chemotherapy
     Route: 065
  20. DOCETAXEL [Suspect]
     Active Substance: DOCETAXEL\DOCETAXEL ANHYDROUS
     Indication: Chemotherapy
     Route: 065
  21. TRASTUZUMAB [Suspect]
     Active Substance: TRASTUZUMAB
     Indication: Chemotherapy
     Route: 065
  22. FUROSEMIDE [Suspect]
     Active Substance: FUROSEMIDE
     Indication: Dilated cardiomyopathy
     Dosage: UNK
     Route: 065
  23. METOPROLOL [Suspect]
     Active Substance: METOPROLOL
     Indication: Cardiac failure chronic
     Route: 065
  24. TRANDOLAPRIL [Concomitant]
     Active Substance: TRANDOLAPRIL
     Indication: Product used for unknown indication
  25. NEOTON [Concomitant]
     Indication: Product used for unknown indication
  26. EPLERENONE [Suspect]
     Active Substance: EPLERENONE
     Indication: Dilated cardiomyopathy
     Route: 065
     Dates: start: 201603

REACTIONS (14)
  - Fatigue [Recovering/Resolving]
  - Dizziness [Recovered/Resolved]
  - Cardiomyopathy [Recovering/Resolving]
  - Ventricular hypokinesia [Recovering/Resolving]
  - Cardiac failure chronic [Recovering/Resolving]
  - Tachypnoea [Recovering/Resolving]
  - Spinal pain [Unknown]
  - Cardiac failure chronic [Recovering/Resolving]
  - Oedema [Recovering/Resolving]
  - Pulmonary congestion [Recovering/Resolving]
  - Dyspnoea [Recovering/Resolving]
  - Obesity [Unknown]
  - Orthopnoea [Recovering/Resolving]
  - Cough [Recovering/Resolving]

NARRATIVE: CASE EVENT DATE: 20160101
